FAERS Safety Report 13920807 (Version 2)
Quarter: 2017Q3

REPORT INFORMATION
  Report Type: Report from Study
  Country: US (occurrence: US)
  Receive Date: 20170830
  Receipt Date: 20170914
  Transmission Date: 20171127
  Serious: Yes (Death, Hospitalization, Other)
  Sender: FDA-Public Use
  Company Number: US-BRISTOL-MYERS SQUIBB COMPANY-BMS-2017-064530

PATIENT
  Age: 80 Year
  Sex: Male
  Weight: 88.44 kg

DRUGS (1)
  1. APIXABAN [Suspect]
     Active Substance: APIXABAN
     Indication: PULMONARY EMBOLISM
     Dosage: 5 MG, BID
     Route: 048
     Dates: start: 20170706

REACTIONS (4)
  - Dysphagia [Recovering/Resolving]
  - Syncope [Unknown]
  - Oesophageal infection [Recovering/Resolving]
  - Adenocarcinoma [Fatal]

NARRATIVE: CASE EVENT DATE: 20170711
